FAERS Safety Report 17375663 (Version 3)
Quarter: 2021Q2

REPORT INFORMATION
  Report Type: Spontaneous
  Country: US (occurrence: US)
  Receive Date: 20200206
  Receipt Date: 20210407
  Transmission Date: 20210716
  Serious: Yes (Hospitalization, Other)
  Sender: FDA-Public Use
  Company Number: US-ASTRAZENECA-2020SE15980

PATIENT
  Age: 597 Month
  Sex: Female
  Weight: 70.3 kg

DRUGS (26)
  1. PRILOSEC [Suspect]
     Active Substance: OMEPRAZOLE MAGNESIUM
     Indication: GASTROOESOPHAGEAL REFLUX DISEASE
     Route: 048
     Dates: start: 201501, end: 201712
  2. FLUOXETINE [Concomitant]
     Active Substance: FLUOXETINE HYDROCHLORIDE
  3. KETOCONAZOLE. [Concomitant]
     Active Substance: KETOCONAZOLE
  4. DOXYCYCLINE. [Concomitant]
     Active Substance: DOXYCYCLINE
  5. PRILOSEC [Suspect]
     Active Substance: OMEPRAZOLE MAGNESIUM
     Indication: GASTROOESOPHAGEAL REFLUX DISEASE
     Dosage: GENERIC
     Route: 065
  6. PREVACID [Suspect]
     Active Substance: LANSOPRAZOLE
     Indication: GASTROOESOPHAGEAL REFLUX DISEASE
     Route: 065
     Dates: start: 2015, end: 2018
  7. LEVOFLOXACIN. [Concomitant]
     Active Substance: LEVOFLOXACIN
  8. AMOXICILLIN. [Concomitant]
     Active Substance: AMOXICILLIN
  9. MIRTAZAPINE. [Concomitant]
     Active Substance: MIRTAZAPINE
  10. PREDNISOLONE. [Concomitant]
     Active Substance: PREDNISOLONE
  11. MUPIROCIN. [Concomitant]
     Active Substance: MUPIROCIN
  12. PERCOCET [Concomitant]
     Active Substance: ACETAMINOPHEN\OXYCODONE HYDROCHLORIDE
     Indication: PAIN
     Dates: start: 201501
  13. RANITIDINE. [Concomitant]
     Active Substance: RANITIDINE
     Dates: start: 201401, end: 201601
  14. PREVACID [Suspect]
     Active Substance: LANSOPRAZOLE
     Indication: GASTROOESOPHAGEAL REFLUX DISEASE
     Route: 065
     Dates: start: 201501, end: 201712
  15. METOPROLOL. [Concomitant]
     Active Substance: METOPROLOL
     Indication: BLOOD PRESSURE ABNORMAL
     Dates: start: 200801
  16. KETOROLAC [Concomitant]
     Active Substance: KETOROLAC TROMETHAMINE
     Indication: EYE PAIN
     Dates: start: 201501
  17. PRILOSEC [Suspect]
     Active Substance: OMEPRAZOLE MAGNESIUM
     Indication: GASTROOESOPHAGEAL REFLUX DISEASE
     Route: 048
     Dates: start: 2004, end: 2017
  18. VITAMIN D2 [Concomitant]
     Active Substance: ERGOCALCIFEROL
  19. ALLOPURINOL. [Concomitant]
     Active Substance: ALLOPURINOL
     Indication: NEPHROLITHIASIS
     Dates: start: 201401
  20. FUROSEMIDE. [Concomitant]
     Active Substance: FUROSEMIDE
     Dates: start: 201001
  21. LANTUS [Concomitant]
     Active Substance: INSULIN GLARGINE
  22. ESCITALOPRAM [Concomitant]
     Active Substance: ESCITALOPRAM OXALATE
  23. GLIPIZIDE. [Concomitant]
     Active Substance: GLIPIZIDE
     Indication: DIABETES MELLITUS
     Dates: start: 201201
  24. PREVACID [Suspect]
     Active Substance: LANSOPRAZOLE
     Indication: GASTROOESOPHAGEAL REFLUX DISEASE
     Dosage: GENERIC
     Route: 065
     Dates: end: 2018
  25. VITAMIN D3 [Concomitant]
     Active Substance: CHOLECALCIFEROL
  26. TRIAMCINOLONE [Concomitant]
     Active Substance: TRIAMCINOLONE

REACTIONS (6)
  - Chronic kidney disease [Unknown]
  - Chronic kidney disease-mineral and bone disorder [Unknown]
  - Hyperparathyroidism secondary [Unknown]
  - Renal failure [Unknown]
  - Gastrooesophageal reflux disease [Not Recovered/Not Resolved]
  - Acute kidney injury [Not Recovered/Not Resolved]

NARRATIVE: CASE EVENT DATE: 201505
